FAERS Safety Report 19918692 (Version 2)
Quarter: 2021Q4

REPORT INFORMATION
  Report Type: Spontaneous
  Country: IT (occurrence: IT)
  Receive Date: 20211005
  Receipt Date: 20211007
  Transmission Date: 20220303
  Serious: Yes (Death)
  Sender: FDA-Public Use
  Company Number: None

PATIENT
  Age: 69 Year
  Sex: Male

DRUGS (7)
  1. CAPECITABINE [Suspect]
     Active Substance: CAPECITABINE
     Indication: Colon cancer stage III
     Dosage: 1000 MILLIGRAM, QD
     Route: 048
     Dates: start: 20210521, end: 20210530
  2. OXALIPLATIN [Suspect]
     Active Substance: OXALIPLATIN
     Indication: Colon cancer stage III
     Dosage: 130 MILLIGRAM, CYCLE
     Route: 042
     Dates: start: 20210521, end: 20210521
  3. ASPIRIN [Concomitant]
     Active Substance: ASPIRIN
     Dosage: UNK, 1 CPR AL GIORNO
  4. BISOPROLOL FUMARATE [Concomitant]
     Active Substance: BISOPROLOL FUMARATE
     Dosage: UNK, 1 CPR AL GIORNO
  5. VALSARTAN [Concomitant]
     Active Substance: VALSARTAN
     Dosage: UNK, 1 CPR AL GIORNO
  6. PANTOPRAZOLE SODIUM [Concomitant]
     Active Substance: PANTOPRAZOLE SODIUM
     Dosage: UNK, 1 CPR AL GIORNO
  7. ATORVASTATIN\EZETIMIBE [Concomitant]
     Active Substance: ATORVASTATIN\EZETIMIBE
     Dosage: UNK

REACTIONS (3)
  - Stomatitis [Fatal]
  - Neutropenia [Fatal]
  - Thrombocytopenia [Fatal]

NARRATIVE: CASE EVENT DATE: 20210529
